FAERS Safety Report 15811736 (Version 1)
Quarter: 2019Q1

REPORT INFORMATION
  Report Type: Spontaneous
  Country: IT (occurrence: IT)
  Receive Date: 20190111
  Receipt Date: 20190111
  Transmission Date: 20190417
  Serious: Yes (Other)
  Sender: FDA-Public Use
  Company Number: IT-HIKMA PHARMACEUTICALS USA INC.-IT-H14001-19-00069

PATIENT
  Age: 22 Year
  Sex: Female
  Weight: 53 kg

DRUGS (1)
  1. VANCOMYCIN [Suspect]
     Active Substance: VANCOMYCIN
     Indication: PROPHYLAXIS
     Dosage: AS NECESSARY
     Route: 041
     Dates: start: 20181212, end: 20181212

REACTIONS (4)
  - Swelling face [Unknown]
  - Pruritus [Unknown]
  - Ear swelling [Unknown]
  - Rash generalised [Unknown]

NARRATIVE: CASE EVENT DATE: 20181212
